FAERS Safety Report 8154259-8 (Version None)
Quarter: 2012Q1

REPORT INFORMATION
  Report Type: 
  Country: None (occurrence: None)
  Receive Date: 20120221
  Receipt Date: 20120215
  Transmission Date: 20120608
  Serious: Yes (Hospitalization, Other)
  Sender: FDA-Public Use
  Company Number: BE-PFIZER INC-2012028415

PATIENT
  Age: 54 Year
  Sex: Female
  Weight: 65 kg

DRUGS (3)
  1. LYRICA [Suspect]
     Indication: NEUROPATHY PERIPHERAL
     Dosage: 300 MG, 2X/DAY
     Route: 048
     Dates: start: 20080101, end: 20120129
  2. OXYCODONE HCL [Concomitant]
     Dosage: 5 MG, AS NEEDED
     Route: 048
  3. FEMOSTON CONTI [Concomitant]
     Dosage: UNK
     Route: 048
     Dates: start: 20100101

REACTIONS (7)
  - ANGIOEDEMA [None]
  - VOMITING [None]
  - BURNING SENSATION [None]
  - GASTRIC ULCER [None]
  - SWELLING FACE [None]
  - DIARRHOEA [None]
  - SHOCK [None]
